FAERS Safety Report 14610286 (Version 4)
Quarter: 2018Q2

REPORT INFORMATION
  Report Type: Spontaneous
  Country: SE (occurrence: SE)
  Receive Date: 20180307
  Receipt Date: 20180501
  Transmission Date: 20180711
  Serious: Yes (Other)
  Sender: FDA-Public Use
  Company Number: SE-PFIZER INC-2018086596

PATIENT
  Age: 77 Year
  Sex: Male

DRUGS (1)
  1. TERRA-CORTRIL POLYMYXIN B [Suspect]
     Active Substance: HYDROCORTISONE\OXYTETRACYCLINE HYDROCHLORIDE\POLYMYXIN B SULFATE
     Indication: EAR INFECTION
     Dosage: 3 DF, 3X/DAY (8 AM, 1 PM, AND 7PM)
     Route: 001
     Dates: start: 20180226, end: 20180301

REACTIONS (8)
  - Ear discomfort [Not Recovered/Not Resolved]
  - Condition aggravated [Not Recovered/Not Resolved]
  - Product physical consistency issue [Unknown]
  - Deafness [Not Recovered/Not Resolved]
  - Accidental overdose [Unknown]
  - Poor quality drug administered [Unknown]
  - Ear swelling [Not Recovered/Not Resolved]
  - Product container issue [Unknown]

NARRATIVE: CASE EVENT DATE: 201802
